FAERS Safety Report 9136216 (Version 1)
Quarter: 2013Q1

REPORT INFORMATION
  Report Type: Report from Study
  Country: DE (occurrence: DE)
  Receive Date: 20130304
  Receipt Date: 20130304
  Transmission Date: 20140127
  Serious: Yes (Hospitalization)
  Sender: FDA-Public Use
  Company Number: DE-GLAXOSMITHKLINE-B0841775A

PATIENT
  Age: 75 Year
  Sex: Female
  Weight: 66 kg

DRUGS (5)
  1. LAPATINIB [Suspect]
     Indication: BREAST NEOPLASM
     Dosage: 750MG PER DAY
     Route: 048
     Dates: start: 20120911
  2. PACLITAXEL [Suspect]
     Indication: BREAST NEOPLASM
     Dosage: 140MG WEEKLY
     Route: 042
     Dates: start: 20120911
  3. MYOCET [Suspect]
     Indication: BREAST NEOPLASM
     Dosage: 35MG WEEKLY
     Route: 042
     Dates: start: 20120911
  4. TRASTUZUMAB [Suspect]
     Indication: BREAST NEOPLASM
     Dosage: 552MG EVERY 3 WEEKS
     Route: 042
     Dates: start: 20120911
  5. CARBOPLATIN [Suspect]
     Indication: BREAST NEOPLASM
     Route: 042
     Dates: start: 20120911

REACTIONS (1)
  - Orthostatic intolerance [Recovered/Resolved]
